FAERS Safety Report 17283387 (Version 1)
Quarter: 2020Q1

REPORT INFORMATION
  Report Type: Spontaneous
  Country: FR (occurrence: FR)
  Receive Date: 20200117
  Receipt Date: 20200117
  Transmission Date: 20200409
  Serious: Yes (Death)
  Sender: FDA-Public Use
  Company Number: FR-PFIZER INC-2020019807

PATIENT
  Age: 35 Year
  Sex: Male

DRUGS (5)
  1. PREGABALIN. [Suspect]
     Active Substance: PREGABALIN
     Dosage: NOT SPECIFIED
  2. KEPPRA [Suspect]
     Active Substance: LEVETIRACETAM
     Dosage: NOT SPECIFIED
  3. LORMETAZEPAM [Suspect]
     Active Substance: LORMETAZEPAM
     Dosage: NOT SPECIFIED
  4. TRAMADOL. [Suspect]
     Active Substance: TRAMADOL
     Dosage: NOT SPECIFIED
  5. METHADONE AP HP [Suspect]
     Active Substance: METHADONE HYDROCHLORIDE
     Dosage: NOT SPECIFIED

REACTIONS (2)
  - Drug abuse [Fatal]
  - Respiratory depression [Fatal]

NARRATIVE: CASE EVENT DATE: 2019
